FAERS Safety Report 6790082-4 (Version None)
Quarter: 2010Q2

REPORT INFORMATION
  Report Type: 
  Country: None (occurrence: None)
  Receive Date: 20100624
  Receipt Date: 20100524
  Transmission Date: 20101027
  Serious: No
  Sender: FDA-Public Use
  Company Number: US-BAYER-201016022BCC

PATIENT
  Age: 72 Year
  Sex: Female
  Weight: 68 kg

DRUGS (3)
  1. ALEVE (CAPLET) [Suspect]
     Indication: ARTHRALGIA
     Dosage: CONSUMER REPORTED THAT SHE TOOK A TOTAL OF 6 CAPLETS ON UNKNOWN DATES
     Route: 048
     Dates: start: 20100501
  2. HIGH BLOOD PRESSURE [Concomitant]
     Route: 048
  3. CHOLESTEROL MEDICATION [Concomitant]
     Route: 065

REACTIONS (1)
  - ARTHRALGIA [None]
